FAERS Safety Report 6120524-9 (Version None)
Quarter: 2009Q1

REPORT INFORMATION
  Report Type: 
  Country: None (occurrence: None)
  Receive Date: 20090316
  Receipt Date: 20090316
  Transmission Date: 20090719
  Serious: Yes (Other)
  Sender: FDA-Public Use
  Company Number: None

PATIENT
  Sex: Male
  Weight: 45 kg

DRUGS (3)
  1. REMICADE [Suspect]
     Indication: CROHN'S DISEASE
     Dosage: 300 MG EVERY 8 WEEKS IV
     Route: 042
     Dates: start: 20090129
  2. REMICADE [Suspect]
     Indication: CROHN'S DISEASE
     Dosage: 300 MG EVERY 8 WEEKS IV
     Route: 042
     Dates: start: 20090211
  3. REMICADE [Suspect]
     Indication: CROHN'S DISEASE
     Dosage: 300 MG EVERY 8 WEEKS IV
     Route: 042
     Dates: start: 20090312

REACTIONS (7)
  - EYE PRURITUS [None]
  - EYELID OEDEMA [None]
  - FEELING HOT [None]
  - FLUSHING [None]
  - INFUSION RELATED REACTION [None]
  - TACHYCARDIA [None]
  - URTICARIA [None]
